FAERS Safety Report 5714596-0 (Version None)
Quarter: 2008Q2

REPORT INFORMATION
  Report Type: 
  Country: None (occurrence: None)
  Receive Date: 20080423
  Receipt Date: 20080414
  Transmission Date: 20081010
  Serious: Yes (Hospitalization, Other)
  Sender: FDA-Public Use
  Company Number: A0722122A

PATIENT
  Age: 63 Year
  Sex: Female
  Weight: 56.7 kg

DRUGS (16)
  1. ADVAIR HFA [Suspect]
     Indication: ASTHMA
     Route: 055
     Dates: end: 20070315
  2. CHANTIX [Suspect]
     Indication: SMOKING CESSATION THERAPY
     Dosage: 1MG TWICE PER DAY
     Dates: start: 20070501
  3. SPIRIVA [Suspect]
     Dates: start: 20060101
  4. UNSPECIFIED TREATMENT [Suspect]
  5. ALBUTEROL [Suspect]
     Indication: ASTHMA
     Route: 055
  6. ATROVENT [Suspect]
     Indication: ASTHMA
     Route: 055
     Dates: start: 20070101
  7. KLONOPIN [Concomitant]
  8. LAMICTAL [Concomitant]
  9. PRIMIDONE [Concomitant]
     Route: 048
  10. PROTONIX [Concomitant]
  11. PEPCID [Concomitant]
  12. SEROQUEL [Concomitant]
     Dosage: 300MG PER DAY
  13. RESTORIL [Concomitant]
     Dosage: 30MG PER DAY
  14. MAVIK [Concomitant]
  15. NORVASC [Concomitant]
  16. WELLBUTRIN XL [Concomitant]
     Indication: DEPRESSION
     Dosage: 150MG PER DAY
     Route: 048

REACTIONS (19)
  - BIPOLAR I DISORDER [None]
  - BLOOD CHOLESTEROL INCREASED [None]
  - BLOOD GLUCOSE INCREASED [None]
  - BLOOD SODIUM DECREASED [None]
  - BRONCHITIS [None]
  - CARDIAC DISORDER [None]
  - CHEST PAIN [None]
  - CONVULSION [None]
  - DELUSION [None]
  - DRUG INTERACTION [None]
  - DYSPEPSIA [None]
  - DYSPNOEA [None]
  - FATIGUE [None]
  - INTERVERTEBRAL DISC PROTRUSION [None]
  - LOSS OF CONSCIOUSNESS [None]
  - MELAENA [None]
  - MOBILITY DECREASED [None]
  - PNEUMONIA [None]
  - WEIGHT INCREASED [None]
